FAERS Safety Report 5136466-1 (Version None)
Quarter: 2006Q4

REPORT INFORMATION
  Report Type: 
  Country: None (occurrence: None)
  Receive Date: 20061027
  Receipt Date: 20061017
  Transmission Date: 20070319
  Serious: Yes (Other)
  Sender: FDA-Public Use
  Company Number: CA-ABBOTT-06P-028-0347822-00

PATIENT
  Age: 36 Year
  Sex: Male

DRUGS (10)
  1. RITONAVIR [Suspect]
     Indication: SYSTEMIC ANTIVIRAL TREATMENT
  2. CARBAMAZEPINE [Interacting]
     Indication: PARTIAL SEIZURES
     Route: 065
  3. CARBAMAZEPINE [Interacting]
     Route: 065
  4. SAQUINAVIR [Suspect]
     Indication: SYSTEMIC ANTIVIRAL TREATMENT
     Route: 065
  5. DIDANOSINE [Suspect]
     Indication: SYSTEMIC ANTIVIRAL TREATMENT
  6. LAMIVUDINE [Suspect]
     Indication: SYSTEMIC ANTIVIRAL TREATMENT
     Route: 065
  7. PHENYTOIN [Concomitant]
     Indication: SYSTEMIC ANTIVIRAL TREATMENT
     Route: 065
  8. STAVUDINE [Concomitant]
     Indication: SYSTEMIC ANTIVIRAL TREATMENT
     Route: 065
  9. INDINIVIR SULFATE [Concomitant]
     Indication: SYSTEMIC ANTIVIRAL TREATMENT
     Route: 065
  10. PRIMIDONE [Concomitant]
     Indication: SYSTEMIC ANTIVIRAL TREATMENT
     Route: 065

REACTIONS (4)
  - DIZZINESS [None]
  - DRUG INTERACTION [None]
  - DRUG TOXICITY [None]
  - GAIT DISTURBANCE [None]
